FAERS Safety Report 14359619 (Version 2)
Quarter: 2018Q1

REPORT INFORMATION
  Report Type: Spontaneous
  Country: US (occurrence: US)
  Receive Date: 20180105
  Receipt Date: 20180105
  Transmission Date: 20180509
  Serious: No
  Sender: FDA-Public Use
  Company Number: -SAAVPROD-BI2016BI080575

PATIENT
  Age: 27 Year
  Sex: Female

DRUGS (3)
  1. OXYMETAZOLINE HYDROCHLORIDE. [Concomitant]
     Active Substance: OXYMETAZOLINE HYDROCHLORIDE
     Indication: MULTIPLE ALLERGIES
     Dosage: FORMULATION: NASAL SPRAY;
  2. RANITIDINE HYDROCHLORIDE. [Suspect]
     Active Substance: RANITIDINE HYDROCHLORIDE
     Indication: DYSPEPSIA
     Dosage: ACTION(S) TAKEN WITH PRODUCT: DOSE NOT CHANGED
     Route: 048
     Dates: start: 201608
  3. AMFETAMINE ASPARTATE/DEXAMFETAMINE SULFATE/DEXAMFETAMINE SACCHARATE/AMFETAMINE SULFATE [Concomitant]
     Indication: MENTAL DISORDER
     Route: 048
     Dates: start: 2012

REACTIONS (2)
  - Job dissatisfaction [Unknown]
  - Amphetamines positive [Unknown]

NARRATIVE: CASE EVENT DATE: 20161121
